FAERS Safety Report 6969010-4 (Version None)
Quarter: 2010Q3

REPORT INFORMATION
  Report Type: 
  Country: None (occurrence: None)
  Receive Date: 20100907
  Receipt Date: 20100826
  Transmission Date: 20110219
  Serious: Yes (Life-Threatening, Other)
  Sender: FDA-Public Use
  Company Number: US-PFIZER INC-2008093703

PATIENT
  Sex: Male
  Weight: 109 kg

DRUGS (4)
  1. CHANTIX [Suspect]
     Indication: TOBACCO ABUSE
     Dosage: 1 MG, 2X/DAY
     Route: 048
     Dates: start: 20070906, end: 20080201
  2. AMOXIL [Concomitant]
     Dosage: 875
     Route: 048
  3. RANITIDINE [Concomitant]
     Dosage: 9-25
     Route: 048
  4. RYNATAN [Concomitant]
     Dosage: UNK
     Route: 048

REACTIONS (12)
  - AGGRESSION [None]
  - AGITATION [None]
  - AMNESIA [None]
  - COMPLEX PARTIAL SEIZURES [None]
  - DEPRESSED MOOD [None]
  - DIASTOLIC DYSFUNCTION [None]
  - DYSPNOEA [None]
  - HYPERTENSION [None]
  - INCISIONAL HERNIA [None]
  - LOSS OF CONSCIOUSNESS [None]
  - PALPITATIONS [None]
  - SUICIDAL IDEATION [None]
